FAERS Safety Report 7743586-1 (Version None)
Quarter: 2011Q3

REPORT INFORMATION
  Report Type: 
  Country: None (occurrence: None)
  Receive Date: 20110909
  Receipt Date: 20110909
  Transmission Date: 20111222
  Serious: Yes (Life-Threatening, Hospitalization)
  Sender: FDA-Public Use
  Company Number: None

PATIENT
  Age: 38 Year
  Sex: Female
  Weight: 86.637 kg

DRUGS (1)
  1. METOPROLOL SUCCINATE EXTENDED RELEASE [Suspect]
     Indication: BLOOD PRESSURE
     Dosage: 1 DAILY 25 MG 1 DAILY MOUTH
     Route: 048
     Dates: start: 20110818

REACTIONS (4)
  - MATERNAL EXPOSURE DURING PREGNANCY [None]
  - VAGINAL HAEMORRHAGE [None]
  - ASTHENIA [None]
  - FOETAL HEART RATE ABNORMAL [None]
